FAERS Safety Report 11124164 (Version 1)
Quarter: 2015Q2

REPORT INFORMATION
  Report Type: Spontaneous
  Country: JP (occurrence: None)
  Receive Date: 20150518
  Receipt Date: 20150518
  Transmission Date: 20150821
  Serious: Yes (Death)
  Sender: FDA-Public Use
  Company Number: COR_00289_2015

PATIENT
  Age: 64 Year
  Sex: Male
  Weight: 43 kg

DRUGS (2)
  1. PEMETREXED (PEMETREXED) [Suspect]
     Active Substance: PEMETREXED
     Indication: LUNG ADENOCARCINOMA STAGE III
  2. CARBOPLATIN. [Suspect]
     Active Substance: CARBOPLATIN
     Indication: LUNG ADENOCARCINOMA STAGE III
     Dosage: AREA UNDER THE CURVE FROM PHARMACOKINETIC MEASUREMENT = 5)

REACTIONS (9)
  - Diarrhoea [None]
  - Vomiting [None]
  - Gastrointestinal necrosis [None]
  - Portal venous gas [None]
  - Abdominal distension [None]
  - Multi-organ failure [None]
  - Hyperglycaemia [None]
  - Sepsis [None]
  - Blood pressure decreased [None]
